FAERS Safety Report 13486349 (Version 1)
Quarter: 2017Q2

REPORT INFORMATION
  Report Type: Not Available
  Country: US (occurrence: US)
  Receive Date: 20170426
  Receipt Date: 20170426
  Transmission Date: 20170830
  Serious: No
  Sender: FDA-Public Use
  Company Number: US-ECOLAB-2016-US-007909

PATIENT
  Age: 57 Year
  Sex: Female

DRUGS (1)
  1. SCRUB-STAT [Suspect]
     Active Substance: CHLORHEXIDINE GLUCONATE
     Dosage: UNKNOWN
     Route: 048

REACTIONS (2)
  - Dysgeusia [Unknown]
  - Accidental exposure to product [Unknown]
